FAERS Safety Report 14527033 (Version 1)
Quarter: 2018Q1

REPORT INFORMATION
  Report Type: Spontaneous
  Country: US (occurrence: US)
  Receive Date: 20180212
  Receipt Date: 20180212
  Transmission Date: 20180509
  Serious: No
  Sender: FDA-Public Use
  Company Number: None

PATIENT
  Sex: Male

DRUGS (1)
  1. FENTANYL ORAL [Suspect]
     Active Substance: FENTANYL

REACTIONS (1)
  - Product use complaint [None]
